FAERS Safety Report 18061059 (Version 1)
Quarter: 2020Q3

REPORT INFORMATION
  Report Type: Report from Study
  Country: CA (occurrence: CA)
  Receive Date: 20200723
  Receipt Date: 20200723
  Transmission Date: 20201103
  Serious: Yes (Death)
  Sender: FDA-Public Use
  Company Number: CA-HLS-202000892

PATIENT
  Age: 68 Year
  Sex: Male

DRUGS (1)
  1. CLOZARIL [Suspect]
     Active Substance: CLOZAPINE
     Route: 048
     Dates: start: 20100827

REACTIONS (3)
  - Cardiac arrest [Fatal]
  - Postoperative delirium [Recovering/Resolving]
  - Poor quality sleep [Unknown]

NARRATIVE: CASE EVENT DATE: 20200710
